FAERS Safety Report 4437584-3 (Version None)
Quarter: 2004Q3

REPORT INFORMATION
  Report Type: 
  Country: None (occurrence: None)
  Receive Date: 20040827
  Receipt Date: 20040818
  Transmission Date: 20050211
  Serious: Yes (Other)
  Sender: FDA-Public Use
  Company Number: 2004228815CO

PATIENT
  Age: 70 Year
  Sex: Female

DRUGS (2)
  1. BEXTRA [Suspect]
     Indication: UVEITIS
     Dosage: 40 MG, ORAL
     Route: 048
  2. CORTISONE (CORTISONE) [Concomitant]

REACTIONS (1)
  - STEVENS-JOHNSON SYNDROME [None]
